FAERS Safety Report 14120564 (Version 1)
Quarter: 2017Q4

REPORT INFORMATION
  Report Type: Spontaneous
  Country: US (occurrence: US)
  Receive Date: 20171024
  Receipt Date: 20171024
  Transmission Date: 20180321
  Serious: No
  Sender: FDA-Public Use
  Company Number: US-PERRIGO-17US023464

PATIENT
  Age: 60 Year
  Sex: Female
  Weight: 58.96 kg

DRUGS (3)
  1. ROGAINE [Concomitant]
     Active Substance: MINOXIDIL
     Indication: PROPHYLAXIS
     Dosage: UNK
     Route: 061
     Dates: start: 2007
  2. NICOTINE POLACRILEX [Suspect]
     Active Substance: NICOTINE
     Indication: SMOKING CESSATION THERAPY
     Dosage: 2 MG, APPROXIMATELY 10 TIMES QD
     Route: 002
     Dates: start: 20161026
  3. NICORETTE [Suspect]
     Active Substance: NICOTINE
     Indication: SMOKING CESSATION THERAPY
     Dosage: 2 MG, APPROXIMATELY 10 TIMES QD
     Route: 002
     Dates: start: 20161026

REACTIONS (2)
  - Alopecia [Not Recovered/Not Resolved]
  - Nicotine dependence [Not Recovered/Not Resolved]

NARRATIVE: CASE EVENT DATE: 20161026
